FAERS Safety Report 5391250-9 (Version None)
Quarter: 2007Q3

REPORT INFORMATION
  Report Type: 
  Country: None (occurrence: None)
  Receive Date: 20070719
  Receipt Date: 20070711
  Transmission Date: 20080115
  Serious: Yes (Hospitalization, Other)
  Sender: FDA-Public Use
  Company Number: US-AMGEN-STX233844

PATIENT
  Sex: Female

DRUGS (1)
  1. ENBREL [Suspect]
     Indication: DRUG USE FOR UNKNOWN INDICATION
     Route: 058
     Dates: start: 20030905

REACTIONS (9)
  - CARDIAC FAILURE [None]
  - CHOLELITHIASIS [None]
  - GAIT DISTURBANCE [None]
  - HEPATITIS [None]
  - INFECTION [None]
  - INJECTION SITE BRUISING [None]
  - INJECTION SITE PAIN [None]
  - MULTI-ORGAN FAILURE [None]
  - PYREXIA [None]
